FAERS Safety Report 21889986 (Version 1)
Quarter: 2023Q1

REPORT INFORMATION
  Report Type: Report from Study
  Country: CA (occurrence: CA)
  Receive Date: 20230120
  Receipt Date: 20230120
  Transmission Date: 20230417
  Serious: Yes (Other)
  Sender: FDA-Public Use
  Company Number: CA-JNJFOC-20230127253

PATIENT
  Sex: Male

DRUGS (1)
  1. REMICADE [Suspect]
     Active Substance: INFLIXIMAB
     Indication: Crohn^s disease
     Route: 042
     Dates: end: 201802

REACTIONS (4)
  - Surgery [Unknown]
  - Ileal stenosis [Unknown]
  - Ileocaecal resection [Unknown]
  - Off label use [Unknown]

NARRATIVE: CASE EVENT DATE: 20150101
